FAERS Safety Report 26144800 (Version 1)
Quarter: 2025Q4

REPORT INFORMATION
  Report Type: Spontaneous
  Country: US (occurrence: None)
  Receive Date: 20251210
  Receipt Date: 20251210
  Transmission Date: 20260118
  Serious: Yes (Death)
  Sender: FDA-CTU
  Company Number: None

PATIENT
  Age: 88 Year
  Sex: Female

DRUGS (1)
  1. VELTASSA [Suspect]
     Active Substance: PATIROMER
     Indication: Hyperkalaemia
     Dosage: 8.4GM THREE TIMES SEEKLY ORAL
     Route: 048
     Dates: start: 20240801

REACTIONS (1)
  - Death [None]

NARRATIVE: CASE EVENT DATE: 20251130
